FAERS Safety Report 25285299 (Version 1)
Quarter: 2025Q2

REPORT INFORMATION
  Report Type: Spontaneous
  Country: US (occurrence: US)
  Receive Date: 20250509
  Receipt Date: 20250509
  Transmission Date: 20250717
  Serious: No
  Sender: COLLEGIUM PHARMACEUTICAL
  Company Number: US-COLLEGIUM PHARMACEUTICAL, INC.-20250100934

PATIENT

DRUGS (5)
  1. XTAMPZA ER [Suspect]
     Active Substance: OXYCODONE
     Indication: Nerve injury
     Route: 048
     Dates: start: 2022, end: 202501
  2. XTAMPZA ER [Suspect]
     Active Substance: OXYCODONE
     Indication: Arthralgia
  3. XTAMPZA ER [Suspect]
     Active Substance: OXYCODONE
     Indication: Back pain
  4. ENTRESTO [Concomitant]
     Active Substance: SACUBITRIL\VALSARTAN
     Indication: Cardiac disorder
     Route: 065
  5. UNSPECIFIED INGREDIENT [Concomitant]
     Active Substance: UNSPECIFIED INGREDIENT
     Indication: Hypertension
     Route: 065

REACTIONS (5)
  - Product use issue [Unknown]
  - Feeling abnormal [Unknown]
  - Product dose omission issue [Unknown]
  - Breakthrough pain [Unknown]
  - Malaise [Unknown]

NARRATIVE: CASE EVENT DATE: 20250101
